FAERS Safety Report 6336252-0 (Version None)
Quarter: 2009Q3

REPORT INFORMATION
  Report Type: 
  Country: None (occurrence: None)
  Receive Date: 20090901
  Receipt Date: 20090821
  Transmission Date: 20100115
  Serious: Yes (Other)
  Sender: FDA-Public Use
  Company Number: US-PFIZER INC-2005056879

PATIENT
  Sex: Female
  Weight: 66.68 kg

DRUGS (4)
  1. LIPITOR [Suspect]
     Indication: BLOOD CHOLESTEROL INCREASED
     Dosage: 40 MG, 1X/DAY
     Route: 048
     Dates: start: 19990101
  2. PROCRIT [Suspect]
     Indication: ANAEMIA
     Route: 065
  3. PLAVIX [Suspect]
     Indication: TRANSIENT ISCHAEMIC ATTACK
     Dosage: 75 MG, UNK
     Route: 048
     Dates: start: 20050101
  4. HUMULIN 70/30 [Concomitant]
     Route: 065

REACTIONS (13)
  - ADRENAL DISORDER [None]
  - ANAEMIA [None]
  - CAROTID ARTERY OCCLUSION [None]
  - CHOLECYSTECTOMY [None]
  - CONSTIPATION [None]
  - DEAFNESS [None]
  - DYSPNOEA [None]
  - FATIGUE [None]
  - GAIT DISTURBANCE [None]
  - MYOCARDIAL INFARCTION [None]
  - RETINAL HAEMORRHAGE [None]
  - RETINOPATHY [None]
  - TRANSIENT ISCHAEMIC ATTACK [None]
